FAERS Safety Report 8905679 (Version 1)
Quarter: 2012Q4

REPORT INFORMATION
  Report Type: 
  Country: US (occurrence: US)
  Receive Date: 20121113
  Receipt Date: 20121113
  Transmission Date: 20130627
  Serious: No
  Sender: FDA-Public Use
  Company Number: US-ASTRAZENECA-2012SE81782

PATIENT
  Age: 489 Month
  Sex: Female
  Weight: 50.3 kg

DRUGS (9)
  1. SYMBICORT PMDI [Suspect]
     Indication: ASTHMA
     Route: 055
     Dates: end: 201205
  2. BUDESONIDE [Suspect]
     Indication: COLITIS MICROSCOPIC
     Route: 055
     Dates: start: 201210
  3. ADVAIR [Suspect]
  4. PHILIPS COLON HEALTH [Concomitant]
     Indication: COLITIS
     Dates: start: 201210
  5. VENTOLIN [Concomitant]
     Indication: ASTHMA
     Dosage: 2 puffs two times daily
     Route: 055
     Dates: start: 1982
  6. HERBAL MEDICINE [Concomitant]
     Indication: LUNG DISORDER
  7. HERBAL MEDICINE [Concomitant]
     Indication: DYSPEPSIA
  8. HERBAL MEDICINE [Concomitant]
     Indication: HAEMORRHOIDS
  9. TRANQUILAX [Concomitant]
     Indication: ANXIETY

REACTIONS (5)
  - Asthma [Recovered/Resolved]
  - Haemorrhoids [Not Recovered/Not Resolved]
  - Obsessive-compulsive disorder [Unknown]
  - Post-traumatic stress disorder [Unknown]
  - Off label use [Unknown]
